FAERS Safety Report 8896372 (Version 1)
Quarter: 2012Q4

REPORT INFORMATION
  Report Type: Spontaneous
  Country: US (occurrence: None)
  Receive Date: 20121031
  Receipt Date: 20121031
  Transmission Date: 20130627
  Serious: Yes (Other)
  Sender: FDA-Public Use
  Company Number: FK201203180

PATIENT
  Age: 25 Year
  Sex: Male

DRUGS (7)
  1. METHOTREXATE [Suspect]
     Indication: SPINDLE CELL SARCOMA
  2. OMEPRAZOLE [Suspect]
     Indication: PROPHYLAXIS AGAINST GASTROINTESTINAL ULCER
  3. CISPLATIN (CISPLATIN) [Concomitant]
  4. FOLINIC ACID (FOLINIC ACID) [Concomitant]
  5. LANSOPRAZOLE (LANSOPRAZOLE) [Concomitant]
  6. LORAZEPAM (LORAZEPAM) [Concomitant]
  7. DOXORUBICIN (DOXORUBICIN] [Concomitant]

REACTIONS (8)
  - Drug interaction [None]
  - Mucosal inflammation [None]
  - Thrombocytopenia [None]
  - Grand mal convulsion [None]
  - Blood creatinine increased [None]
  - Headache [None]
  - Oral candidiasis [None]
  - Haemodialysis [None]
